FAERS Safety Report 10977152 (Version 2)
Quarter: 2015Q3

REPORT INFORMATION
  Report Type: Report from Study
  Country: US (occurrence: US)
  Receive Date: 20150402
  Receipt Date: 20150821
  Transmission Date: 20151125
  Serious: Yes (Other)
  Sender: FDA-Public Use
  Company Number: US-THROMBOGENICS NV-CLI-2014-1490

PATIENT
  Age: 76 Year
  Sex: Male

DRUGS (2)
  1. ZYLET [Concomitant]
     Active Substance: LOTEPREDNOL ETABONATE\TOBRAMYCIN
     Indication: EYE IRRITATION
     Dosage: 1 DF, BID
     Dates: start: 2014, end: 201412
  2. JETREA [Suspect]
     Active Substance: OCRIPLASMIN
     Indication: VITREOUS ADHESIONS
     Dosage: 0.125 MG, ONE TIME DOSE
     Route: 031
     Dates: start: 20141120, end: 20141120

REACTIONS (5)
  - Subretinal fluid [Recovered/Resolved]
  - Vision blurred [Recovered/Resolved]
  - Photopsia [Recovered/Resolved]
  - Visual acuity reduced [Recovered/Resolved]
  - Retinal injury [Recovered/Resolved]

NARRATIVE: CASE EVENT DATE: 20141120
